FAERS Safety Report 14629925 (Version 2)
Quarter: 2018Q1

REPORT INFORMATION
  Report Type: Spontaneous
  Country: BR (occurrence: BR)
  Receive Date: 20180313
  Receipt Date: 20180321
  Transmission Date: 20180509
  Serious: Yes (Life-Threatening)
  Sender: FDA-Public Use
  Company Number: BR-BAXTER-2018BAX008191

PATIENT
  Age: 72 Year
  Sex: Female
  Weight: 60 kg

DRUGS (8)
  1. CLORETO DE S?DIO - BAXTER [Suspect]
     Active Substance: SODIUM CHLORIDE
     Indication: MEDICATION DILUTION
     Route: 042
     Dates: start: 20180303, end: 20180303
  2. RANITIDINE. [Suspect]
     Active Substance: RANITIDINE
     Indication: GASTRIC DISORDER
     Route: 065
     Dates: start: 20180302, end: 20180303
  3. METFORMIN [Concomitant]
     Active Substance: METFORMIN HYDROCHLORIDE
     Indication: DIABETES MELLITUS
     Route: 065
  4. SUCROFERRIC OXYHYDROXIDE [Suspect]
     Active Substance: FERRIC OXYHYDROXIDE
     Indication: ANAEMIA
     Dosage: 1 AMPOULE (1000 MG)
     Route: 042
     Dates: start: 20180303, end: 20180303
  5. CEFTRIAXONE. [Suspect]
     Active Substance: CEFTRIAXONE
     Indication: URINARY TRACT INFECTION
     Route: 065
     Dates: start: 20180301, end: 20180303
  6. PLAMET [Suspect]
     Active Substance: BROMOPRIDE
     Indication: NAUSEA
     Route: 065
     Dates: start: 20180302, end: 20180303
  7. NORFLOXACIN [Suspect]
     Active Substance: NORFLOXACIN
     Indication: URINARY TRACT INFECTION
     Route: 065
     Dates: start: 20180301, end: 20180303
  8. FERROUS SULFATE. [Suspect]
     Active Substance: FERROUS SULFATE
     Indication: ANAEMIA
     Route: 065
     Dates: start: 20180302, end: 20180303

REACTIONS (1)
  - Anaphylactic shock [Recovered/Resolved]

NARRATIVE: CASE EVENT DATE: 20180303
